FAERS Safety Report 9220507 (Version 1)
Quarter: 2013Q2

REPORT INFORMATION
  Report Type: Spontaneous
  Country: DE (occurrence: GB)
  Receive Date: 20130409
  Receipt Date: 20130409
  Transmission Date: 20140414
  Serious: Yes (Hospitalization, Other)
  Sender: FDA-Public Use
  Company Number: GB-FRI-1000044111

PATIENT
  Age: 53 Year
  Sex: Male

DRUGS (4)
  1. MEMANTINE [Suspect]
     Indication: NYSTAGMUS
     Dosage: 20 MG
     Route: 048
  2. MEMANTINE [Suspect]
     Indication: NYSTAGMUS
     Dosage: 10 MG
     Route: 048
     Dates: end: 20120823
  3. BENZYLPENICILLIN [Concomitant]
     Indication: URINARY TRACT INFECTION
     Dosage: 4.8 GRAM
     Route: 042
     Dates: start: 20120726, end: 20120730
  4. GENTAMICIN [Concomitant]
     Indication: URINARY TRACT INFECTION
     Dosage: 160 MG
     Route: 042
     Dates: start: 20120726, end: 20120730

REACTIONS (4)
  - Renal failure acute [Recovering/Resolving]
  - Myalgia [Recovering/Resolving]
  - Muscular weakness [Recovering/Resolving]
  - Off label use [Recovering/Resolving]
